FAERS Safety Report 15739889 (Version 1)
Quarter: 2018Q4

REPORT INFORMATION
  Report Type: Other
  Country: JP (occurrence: JP)
  Receive Date: 20181219
  Receipt Date: 20181219
  Transmission Date: 20190205
  Serious: Yes (Other)
  Sender: FDA-Public Use
  Company Number: JP-EMD SERONO-9058748

PATIENT
  Age: 34 Year
  Sex: Female

DRUGS (2)
  1. LEVOTHYROXINE. [Concomitant]
     Active Substance: LEVOTHYROXINE
     Indication: THYROID DISORDER
  2. INTERFERON BETA-1A [Suspect]
     Active Substance: INTERFERON BETA-1A
     Indication: MULTIPLE SCLEROSIS

REACTIONS (4)
  - Hypertriglyceridaemia [Recovered/Resolved]
  - Hyperchylomicronaemia [Unknown]
  - Autoantibody positive [Recovered/Resolved]
  - Lipoprotein deficiency [Recovered/Resolved]
